FAERS Safety Report 11858966 (Version 3)
Quarter: 2016Q2

REPORT INFORMATION
  Report Type: Spontaneous
  Country: CA (occurrence: CA)
  Receive Date: 20151222
  Receipt Date: 20160629
  Transmission Date: 20160815
  Serious: Yes (Other)
  Sender: FDA-Public Use
  Company Number: CA-ROCHE-1679202

PATIENT
  Age: 40 Year
  Sex: Female

DRUGS (6)
  1. XOLAIR [Suspect]
     Active Substance: OMALIZUMAB
     Route: 058
     Dates: start: 20151208
  2. VENTOLIN [Concomitant]
     Active Substance: ALBUTEROL SULFATE
     Route: 065
  3. XOLAIR [Suspect]
     Active Substance: OMALIZUMAB
     Indication: ASTHMA
     Route: 058
     Dates: start: 20150526, end: 20151208
  4. HIZENTRA [Concomitant]
     Active Substance: HUMAN IMMUNOGLOBULIN G
     Route: 065
  5. GUAIFENESIN. [Concomitant]
     Active Substance: GUAIFENESIN
     Route: 065
  6. SYMBICORT [Concomitant]
     Active Substance: BUDESONIDE\FORMOTEROL FUMARATE DIHYDRATE
     Route: 065

REACTIONS (27)
  - Sinus congestion [Unknown]
  - Haematoma [Unknown]
  - Paraesthesia [Unknown]
  - Neuralgia [Unknown]
  - Blood immunoglobulin E increased [Recovering/Resolving]
  - Pain [Recovered/Resolved]
  - Pruritus [Unknown]
  - Dermatitis atopic [Unknown]
  - Cough [Unknown]
  - Erythema [Unknown]
  - Alopecia [Unknown]
  - Asthenia [Unknown]
  - Nasal congestion [Not Recovered/Not Resolved]
  - Fatigue [Unknown]
  - Dermatitis [Unknown]
  - Skin infection [Unknown]
  - Dermatitis allergic [Unknown]
  - Urticaria [Unknown]
  - Nasopharyngitis [Unknown]
  - Respiratory tract congestion [Unknown]
  - Drug ineffective [Unknown]
  - Palpitations [Unknown]
  - Obstructive airways disorder [Unknown]
  - Dyspnoea [Unknown]
  - Visual acuity reduced [Unknown]
  - Skin irritation [Unknown]
  - Lung disorder [Unknown]

NARRATIVE: CASE EVENT DATE: 20150526
